FAERS Safety Report 9924737 (Version 2)
Quarter: 2014Q1

REPORT INFORMATION
  Report Type: Spontaneous
  Country: US (occurrence: US)
  Receive Date: 20140226
  Receipt Date: 20140226
  Transmission Date: 20141002
  Serious: Yes (Disabling)
  Sender: FDA-Public Use
  Company Number: US-GE HEALTHCARE MEDICAL DIAGNOSTICS-OSCN-PR-0901S-0002

PATIENT
  Age: 59 Year
  Sex: Male

DRUGS (25)
  1. GADOLINIUM (UNSPECIFIED) [Suspect]
     Indication: PRODUCT USED FOR UNKNOWN INDICATION
     Dates: start: 200505, end: 200505
  2. GADOLINIUM (UNSPECIFIED) [Suspect]
     Indication: PRODUCT USED FOR UNKNOWN INDICATION
     Dates: start: 20010831, end: 20010831
  3. GADOLINIUM (UNSPECIFIED) [Suspect]
     Indication: PRODUCT USED FOR UNKNOWN INDICATION
  4. MAGNEVIST [Suspect]
     Indication: ARTERIOVENOUS FISTULA SITE COMPLICATION
     Dates: start: 20010729, end: 20010729
  5. MAGNEVIST [Suspect]
     Dates: start: 20050518, end: 20050518
  6. LEVOTHYROXINE [Concomitant]
  7. PLAVIX [Concomitant]
  8. CITALOPRAM [Concomitant]
  9. CALCITRIOL [Concomitant]
  10. RANITIDINE [Concomitant]
  11. SEVELAMER [Concomitant]
  12. HYDROCODONE [Concomitant]
  13. NEPHROCAPS [Concomitant]
  14. IRON [Concomitant]
  15. NPH INSULIN [Concomitant]
  16. AMMONIUM LACTATE [Concomitant]
  17. FUROSEMIDE [Concomitant]
  18. EPOGEN [Concomitant]
  19. PROCRIT [Concomitant]
  20. ZEMPLAR [Concomitant]
  21. PHOSLO [Concomitant]
  22. COREG [Concomitant]
  23. AVANDIA [Concomitant]
  24. LIPITOR [Concomitant]
  25. OMNIPAQUE [Concomitant]

REACTIONS (1)
  - Nephrogenic systemic fibrosis [Not Recovered/Not Resolved]
